FAERS Safety Report 8996219 (Version 3)
Quarter: 2013Q2

REPORT INFORMATION
  Report Type: Report from Study
  Country: BR (occurrence: BR)
  Receive Date: 20130103
  Receipt Date: 20130423
  Transmission Date: 20140414
  Serious: Yes (Hospitalization, Other)
  Sender: FDA-Public Use
  Company Number: BR-US-EMD SERONO, INC.-7185028

PATIENT
  Age: 49 Year
  Sex: Female

DRUGS (3)
  1. REBIF [Suspect]
     Indication: RELAPSING-REMITTING MULTIPLE SCLEROSIS
     Dates: start: 20101118
  2. REBIF [Suspect]
     Dates: start: 20110217, end: 201211
  3. REBIF [Suspect]
     Dates: start: 20130408

REACTIONS (3)
  - Decreased appetite [Not Recovered/Not Resolved]
  - Dizziness [Unknown]
  - Oropharyngeal cancer [Recovered/Resolved]
